FAERS Safety Report 9318396 (Version 1)
Quarter: 2013Q2

REPORT INFORMATION
  Report Type: Spontaneous
  Country: US (occurrence: None)
  Receive Date: 20130529
  Receipt Date: 20130529
  Transmission Date: 20140414
  Serious: Yes (Other)
  Sender: FDA-Public Use
  Company Number: None

PATIENT
  Age: 47 Year
  Sex: Female
  Weight: 71.2 kg

DRUGS (1)
  1. ALTEPLASE [Suspect]
     Indication: ISCHAEMIC STROKE
     Dosage: BOLUS DOSE 6.4MG X1 ONLY OVER 1 MIN IV BOLUS?INFUSION DOSE 37.5MG OVER 60 MIN  IV DRIP
     Dates: start: 20130502, end: 20130502

REACTIONS (2)
  - Vaginal haemorrhage [None]
  - Genital haemorrhage [None]
